FAERS Safety Report 7327392-8 (Version None)
Quarter: 2011Q1

REPORT INFORMATION
  Report Type: 
  Country: None (occurrence: None)
  Receive Date: 20110302
  Receipt Date: 20110218
  Transmission Date: 20110831
  Serious: Yes (Other)
  Sender: FDA-Public Use
  Company Number: ES-BAYER-2011-018337

PATIENT
  Age: 47 Year
  Sex: Female

DRUGS (6)
  1. PECTOX LISINA [Concomitant]
     Dosage: UNK
  2. DAYAMINERAL [Concomitant]
     Dosage: UNK
     Dates: end: 20110201
  3. INMUNOFERON [Concomitant]
     Dosage: UNK
     Dates: start: 20110201
  4. BAYCIP [Suspect]
     Indication: URINARY TRACT INFECTION
     Dosage: UNK
     Dates: start: 20101201
  5. BISOLTUS [Concomitant]
     Dosage: UNK
  6. RHODOGIL [Concomitant]
     Dosage: UNK

REACTIONS (5)
  - LIP PAIN [None]
  - PRURITUS [None]
  - ERYTHEMA [None]
  - ERYTHROSIS [None]
  - ROSACEA [None]
